FAERS Safety Report 22655563 (Version 5)
Quarter: 2024Q4

REPORT INFORMATION
  Report Type: Spontaneous
  Country: US (occurrence: US)
  Receive Date: 20230629
  Receipt Date: 20241209
  Transmission Date: 20250115
  Serious: No
  Sender: VERTEX
  Company Number: US-VERTEX PHARMACEUTICALS-2023-005372

PATIENT
  Sex: Female

DRUGS (3)
  1. TRIKAFTA [Suspect]
     Active Substance: ELEXACAFTOR\IVACAFTOR\TEZACAFTOR
     Indication: Cystic fibrosis
     Dosage: YELLOW PILLS IN MORNING AND BLUE IN EVENING
     Route: 048
  2. TRIKAFTA [Suspect]
     Active Substance: ELEXACAFTOR\IVACAFTOR\TEZACAFTOR
     Dosage: SWAPPING NIGHT AND DAY DOSE
     Route: 048
  3. TRIKAFTA [Suspect]
     Active Substance: ELEXACAFTOR\IVACAFTOR\TEZACAFTOR
     Dosage: ONCE DAILY IN MORNING
     Route: 048

REACTIONS (4)
  - Anxiety [Recovering/Resolving]
  - Mood swings [Recovering/Resolving]
  - Anger [Recovering/Resolving]
  - Poor quality sleep [Recovering/Resolving]
